FAERS Safety Report 15677673 (Version 1)
Quarter: 2018Q4

REPORT INFORMATION
  Report Type: Report from Study
  Country: US (occurrence: US)
  Receive Date: 20181130
  Receipt Date: 20181130
  Transmission Date: 20190205
  Serious: Yes (Hospitalization)
  Sender: FDA-Public Use
  Company Number: US-ACTELION-A-NJ2018-173431

PATIENT
  Age: 62 Year
  Sex: Male
  Weight: 107.48 kg

DRUGS (4)
  1. UPTRAVI [Suspect]
     Active Substance: SELEXIPAG
     Indication: PULMONARY ARTERIAL HYPERTENSION
     Dosage: 1600 MCG, BID
     Route: 048
  2. UPTRAVI [Suspect]
     Active Substance: SELEXIPAG
     Dosage: 400 MCG, BID
     Route: 048
  3. OPSUMIT [Suspect]
     Active Substance: MACITENTAN
     Indication: PULMONARY ARTERIAL HYPERTENSION
     Dosage: 10 MG, QD
     Route: 048
     Dates: start: 20180501
  4. ADEMPAS [Concomitant]
     Active Substance: RIOCIGUAT

REACTIONS (16)
  - Urticaria [Unknown]
  - Visual impairment [Unknown]
  - Dizziness [Unknown]
  - Malaise [Unknown]
  - Condition aggravated [Unknown]
  - Fatigue [Unknown]
  - Cataract [Unknown]
  - Abdominal discomfort [Unknown]
  - Headache [Unknown]
  - Nausea [Unknown]
  - Joint swelling [Unknown]
  - Rash [Unknown]
  - Vision blurred [Unknown]
  - Myalgia [Unknown]
  - Pruritus generalised [Unknown]
  - Bone pain [Unknown]
